FAERS Safety Report 7818879-X (Version None)
Quarter: 2011Q4

REPORT INFORMATION
  Report Type: 
  Country: None (occurrence: None)
  Receive Date: 20111017
  Receipt Date: 20111017
  Transmission Date: 20120403
  Serious: Yes (Hospitalization)
  Sender: FDA-Public Use
  Company Number: None

PATIENT
  Age: 62 Year
  Sex: Male
  Weight: 85.5 kg

DRUGS (2)
  1. CLOPIDOGREL [Suspect]
     Indication: ANGIOGRAM
     Dosage: 75 MG EVERY DAY PO
     Route: 048
     Dates: start: 20090622
  2. WARFARIN SODIUM [Suspect]
     Indication: ATRIAL FIBRILLATION
     Dosage: MG PO
     Route: 048
     Dates: start: 20100309

REACTIONS (2)
  - TOOTH EXTRACTION [None]
  - POST PROCEDURAL HAEMORRHAGE [None]
